FAERS Safety Report 9303143 (Version 2)
Quarter: 2013Q2

REPORT INFORMATION
  Report Type: Spontaneous
  Country: CZ (occurrence: CZ)
  Receive Date: 20130522
  Receipt Date: 20130603
  Transmission Date: 20140414
  Serious: Yes (Other)
  Sender: FDA-Public Use
  Company Number: CZ-JNJFOC-20130512741

PATIENT
  Age: 40 Year
  Sex: Male

DRUGS (6)
  1. CLADRIBINE [Suspect]
     Indication: LANGERHANS^ CELL HISTIOCYTOSIS
     Route: 058
  2. CLADRIBINE [Suspect]
     Indication: LANGERHANS^ CELL HISTIOCYTOSIS
     Route: 042
  3. DEXAMETHASONE [Suspect]
     Indication: LANGERHANS^ CELL HISTIOCYTOSIS
     Dosage: ON DAYS 1-5 IN CYCLES 4-6
     Route: 048
  4. METHYLPREDNISOLONE [Suspect]
     Indication: LANGERHANS^ CELL HISTIOCYTOSIS
     Dosage: ON DAYS 1-5 IN CYCLES 4-6
     Route: 042
  5. CYCLOPHOSPHAMIDE [Suspect]
     Indication: LANGERHANS^ CELL HISTIOCYTOSIS
     Dosage: ON DAYS 1-5 IN CYCLES 4-6
     Route: 042
  6. PSORALEN PLUS ULTRAVIOLET LIGHT THERAPY [Concomitant]
     Indication: LANGERHANS^ CELL HISTIOCYTOSIS
     Route: 065

REACTIONS (6)
  - Leukopenia [Recovering/Resolving]
  - Tonsillitis [Unknown]
  - Langerhans^ cell histiocytosis [Unknown]
  - Lymphopenia [Recovering/Resolving]
  - Off label use [Unknown]
  - Incorrect route of drug administration [Unknown]
